FAERS Safety Report 16416273 (Version 1)
Quarter: 2019Q2

REPORT INFORMATION
  Report Type: Spontaneous
  Country: US (occurrence: US)
  Receive Date: 20190503
  Receipt Date: 20190503
  Transmission Date: 20190711
  Serious: Yes (Hospitalization)
  Sender: FDA-Public Use
  Company Number: None

PATIENT
  Age: 72 Year
  Sex: Female
  Weight: 51.71 kg

DRUGS (11)
  1. ESTRADIOL. [Concomitant]
     Active Substance: ESTRADIOL
  2. PREDNISONE. [Concomitant]
     Active Substance: PREDNISONE
  3. DICLOFENAC SODIUM DELAYED RELEASE TABLETS 75MG [Suspect]
     Active Substance: DICLOFENAC SODIUM
     Indication: ARTHRITIS
     Dosage: ?          QUANTITY:75 MG MILLIGRAM(S);?
     Route: 048
     Dates: start: 20181222, end: 20190111
  4. MELATONIN [Concomitant]
     Active Substance: MELATONIN
  5. ATIVAN [Concomitant]
     Active Substance: LORAZEPAM
  6. URD [Concomitant]
  7. COQ10 [Concomitant]
     Active Substance: UBIDECARENONE
  8. METFORMIN [Concomitant]
     Active Substance: METFORMIN HYDROCHLORIDE
  9. BP [Concomitant]
     Active Substance: CYCLOMETHICONE 5
  10. VITAMIN B12 [Concomitant]
     Active Substance: CYANOCOBALAMIN
  11. MGMALATE [Concomitant]

REACTIONS (5)
  - Blood sodium decreased [None]
  - Confusional state [None]
  - Hypertension [None]
  - Product dose omission [None]
  - Delirium [None]

NARRATIVE: CASE EVENT DATE: 20190115
